FAERS Safety Report 23748830 (Version 2)
Quarter: 2024Q2

REPORT INFORMATION
  Report Type: Spontaneous
  Country: US (occurrence: US)
  Receive Date: 20240416
  Receipt Date: 20240503
  Transmission Date: 20240716
  Serious: No
  Sender: FDA-Public Use
  Company Number: US-PFIZER INC-202400085244

PATIENT
  Age: 73 Year
  Sex: Male

DRUGS (4)
  1. VYNDAMAX [Suspect]
     Active Substance: TAFAMIDIS
     Indication: Heart valve incompetence
     Dosage: 61 MG, 1X/DAY
     Route: 048
     Dates: start: 20240329
  2. IRON [Concomitant]
     Active Substance: IRON
  3. DIOVAN [Concomitant]
     Active Substance: VALSARTAN
  4. FUROSEMIDE [Concomitant]
     Active Substance: FUROSEMIDE

REACTIONS (1)
  - Nasopharyngitis [Recovered/Resolved]
